FAERS Safety Report 7957829-2 (Version None)
Quarter: 2011Q4

REPORT INFORMATION
  Report Type: 
  Country: None (occurrence: None)
  Receive Date: 20111130
  Receipt Date: 20111122
  Transmission Date: 20120403
  Serious: Yes (Hospitalization)
  Sender: FDA-Public Use
  Company Number: 2011S1001492

PATIENT
  Age: 73 Year
  Sex: Male
  Weight: 50 kg

DRUGS (8)
  1. BASEN [Concomitant]
  2. LIVALO [Suspect]
     Indication: HYPERCHOLESTEROLAEMIA
     Dosage: 1 MG; 1X;PO, 2 MG;BID;PO
     Route: 048
     Dates: start: 20110117, end: 20110926
  3. LIVALO [Suspect]
     Indication: HYPERCHOLESTEROLAEMIA
     Dosage: 1 MG; 1X;PO, 2 MG;BID;PO
     Route: 048
     Dates: end: 20110116
  4. ARTTST [Concomitant]
  5. ASPIRIN [Concomitant]
  6. MICARDIS [Concomitant]
  7. OMEPRAZOLE [Concomitant]
  8. WARFARIN SODIUM [Concomitant]

REACTIONS (3)
  - RHABDOMYOLYSIS [None]
  - BACTERIAL INFECTION [None]
  - MALAISE [None]
